FAERS Safety Report 12235127 (Version 1)
Quarter: 2016Q2

REPORT INFORMATION
  Report Type: Spontaneous
  Country: US (occurrence: US)
  Receive Date: 20160404
  Receipt Date: 20160404
  Transmission Date: 20160815
  Serious: No
  Sender: FDA-Public Use
  Company Number: US-009507513-1603USA010799

PATIENT
  Age: 33 Year
  Sex: Male

DRUGS (1)
  1. NASONEX [Suspect]
     Active Substance: MOMETASONE FUROATE
     Indication: HYPERSENSITIVITY
     Dosage: UNK
     Dates: start: 2015

REACTIONS (6)
  - Eye pain [Unknown]
  - Drug dose omission [Unknown]
  - Dry eye [Unknown]
  - Sneezing [Unknown]
  - Asthenopia [Unknown]
  - Rhinorrhoea [Unknown]
